FAERS Safety Report 19572686 (Version 1)
Quarter: 2021Q3

REPORT INFORMATION
  Report Type: Report from Study
  Country: CO (occurrence: CO)
  Receive Date: 20210715
  Receipt Date: 20210715
  Transmission Date: 20211014
  Serious: Yes (Hospitalization, Other)
  Sender: FDA-Public Use
  Company Number: CO-JNJFOC-20210718109

PATIENT
  Age: 34 Year
  Sex: Female
  Weight: 68 kg

DRUGS (1)
  1. SIMPONI [Suspect]
     Active Substance: GOLIMUMAB
     Indication: ANKYLOSING SPONDYLITIS
     Route: 058
     Dates: start: 20210604

REACTIONS (6)
  - Nausea [Recovered/Resolved]
  - Hypovolaemic shock [Not Recovered/Not Resolved]
  - Post procedural haematoma [Not Recovered/Not Resolved]
  - Discouragement [Recovered/Resolved]
  - Chills [Recovered/Resolved]
  - Myomectomy [Not Recovered/Not Resolved]

NARRATIVE: CASE EVENT DATE: 20210604
